FAERS Safety Report 24269790 (Version 2)
Quarter: 2024Q4

REPORT INFORMATION
  Report Type: Spontaneous
  Country: US (occurrence: US)
  Receive Date: 20240830
  Receipt Date: 20241003
  Transmission Date: 20250115
  Serious: Yes (Other)
  Sender: JOHNSON AND JOHNSON
  Company Number: US-JNJFOC-20240875000

PATIENT
  Age: 77 Year
  Sex: Male
  Weight: 72.6 kg

DRUGS (7)
  1. OPSUMIT [Suspect]
     Active Substance: MACITENTAN
     Indication: Product used for unknown indication
     Route: 048
  2. TYVASO DPI [Suspect]
     Active Substance: TREPROSTINIL
     Indication: Pulmonary arterial hypertension
     Route: 055
     Dates: start: 20230905
  3. FUROSEMIDE [Concomitant]
     Active Substance: FUROSEMIDE
  4. TYLENOL EXTRA STRENGTH [Concomitant]
     Active Substance: ACETAMINOPHEN
  5. XARELTO [Concomitant]
     Active Substance: RIVAROXABAN
  6. OFEV [Concomitant]
     Active Substance: NINTEDANIB
  7. OXYGEN [Concomitant]
     Active Substance: OXYGEN

REACTIONS (5)
  - Condition aggravated [Recovering/Resolving]
  - Drug hypersensitivity [Unknown]
  - Peripheral swelling [Unknown]
  - Fluid retention [Unknown]
  - Therapy non-responder [Unknown]
